FAERS Safety Report 20814377 (Version 1)
Quarter: 2022Q2

REPORT INFORMATION
  Report Type: Report from Study
  Country: US (occurrence: US)
  Receive Date: 20220511
  Receipt Date: 20220511
  Transmission Date: 20220720
  Serious: Yes (Other)
  Sender: FDA-Public Use
  Company Number: US-UCBSA-2022025702

PATIENT
  Age: 0 Year
  Sex: Male
  Weight: 3.34 kg

DRUGS (23)
  1. CERTOLIZUMAB PEGOL [Suspect]
     Active Substance: CERTOLIZUMAB PEGOL
     Indication: Rheumatoid arthritis
     Dosage: 200 MILLIGRAM, EV 2 MONTHS
     Route: 064
     Dates: start: 20210313, end: 20211001
  2. ACETAMINOPHEN [Concomitant]
     Active Substance: ACETAMINOPHEN
     Indication: Pain
     Dosage: 650 MILLIGRAM, ONCE DAILY (QD)
     Route: 064
     Dates: start: 20210910, end: 20210915
  3. ACETAMINOPHEN [Concomitant]
     Active Substance: ACETAMINOPHEN
     Dosage: 650 MILLIGRAM, ONCE DAILY (QD)
     Route: 064
     Dates: start: 20210611, end: 20210909
  4. IBUPROFEN [Concomitant]
     Active Substance: IBUPROFEN
     Indication: Pain
     Dosage: 400 MILLIGRAM, 2X/DAY (BID)
     Route: 064
     Dates: start: 20210511, end: 20210610
  5. IBUPROFEN [Concomitant]
     Active Substance: IBUPROFEN
     Indication: Inflammation
  6. AMOXYCILLIN [AMOXICILLIN] [Concomitant]
     Indication: Ear infection
     Dosage: 875 MILLIGRAM, 2X/DAY (BID)
     Route: 064
     Dates: start: 20211029, end: 20211108
  7. AMOXICILLIN\CLAVULANATE POTASSIUM [Concomitant]
     Active Substance: AMOXICILLIN\CLAVULANATE POTASSIUM
     Indication: Ear infection
     Dosage: 1 DOSAGE FORM, 2X/DAY (BID)
     Route: 064
     Dates: start: 20211112, end: 20211122
  8. ASPIRIN [Concomitant]
     Active Substance: ASPIRIN
     Indication: Pre-eclampsia
     Dosage: 81 MILLIGRAM, ONCE DAILY (QD)
     Route: 064
     Dates: start: 20210801, end: 20220209
  9. CLOTRIMAZOLE [Concomitant]
     Active Substance: CLOTRIMAZOLE
     Indication: Fungal infection
     Dosage: UNK, ONCE DAILY (QD)
     Route: 064
     Dates: start: 20211119, end: 20220105
  10. INFLUENZA VIRUS VACCINE [Concomitant]
     Active Substance: INFLUENZA VIRUS VACCINE
     Indication: Product used for unknown indication
     Dosage: 1 DOSAGE FORM, ONE TIME DOSE
     Route: 064
     Dates: start: 20211128, end: 20211128
  11. HYDROXYCHLOROQUINE SULFATE [Concomitant]
     Active Substance: HYDROXYCHLOROQUINE SULFATE
     Indication: Rheumatoid arthritis
     Dosage: 300 MILLIGRAM, ONCE DAILY (QD)
     Route: 064
     Dates: start: 20210511, end: 20220210
  12. LEVOTHYROXINE SODIUM [Concomitant]
     Active Substance: LEVOTHYROXINE SODIUM
     Indication: Autoimmune thyroiditis
     Dosage: 25 MICROGRAM, ONCE DAILY (QD)
     Route: 064
     Dates: start: 20210629, end: 20220210
  13. METHYLPREDNISOLONE [Concomitant]
     Active Substance: METHYLPREDNISOLONE
     Indication: Rheumatoid arthritis
     Dosage: 1 MILLIGRAM, 2X/DAY (BID)
     Route: 064
     Dates: start: 20210615, end: 20210627
  14. METHYLPREDNISOLONE [Concomitant]
     Active Substance: METHYLPREDNISOLONE
     Indication: Back pain
     Dosage: 1 MILLIGRAM, ONCE DAILY (QD)
     Route: 064
     Dates: start: 20210511, end: 20210603
  15. METHYLPREDNISOLONE [Concomitant]
     Active Substance: METHYLPREDNISOLONE
     Dosage: 1 MILLIGRAM, ONCE DAILY (QD)
     Route: 064
     Dates: start: 20210628, end: 20210909
  16. METHYLPREDNISOLONE [Concomitant]
     Active Substance: METHYLPREDNISOLONE
     Dosage: 2 MILLIGRAM, ONCE DAILY (QD)
     Route: 064
     Dates: start: 20220116, end: 20220209
  17. METHYLPREDNISOLONE [Concomitant]
     Active Substance: METHYLPREDNISOLONE
     Dosage: 1 MILLIGRAM, ONCE DAILY (QD)
     Route: 064
     Dates: start: 20210921, end: 20210925
  18. NEOMYCIN SULFATE;POLYMYXIN B SULFATE [Concomitant]
     Indication: Ear infection
     Dosage: 2 DROP, 4X/DAY (QID)
     Route: 064
     Dates: start: 20210730, end: 20210806
  19. PFIZER-BIONTECH COVID-19 VACCINE [Concomitant]
     Active Substance: TOZINAMERAN
     Indication: Product used for unknown indication
     Dosage: 1 DOSAGE FORM, ONE TIME DOSE
     Route: 064
     Dates: start: 20210806, end: 20210806
  20. PFIZER-BIONTECH COVID-19 VACCINE [Concomitant]
     Active Substance: TOZINAMERAN
     Dosage: 1 DOSAGE FORM, ONE TIME DOSE
     Route: 064
     Dates: start: 20210827, end: 20210827
  21. MINERALS\VITAMINS [Concomitant]
     Active Substance: MINERALS\VITAMINS
     Indication: Product used for unknown indication
     Dosage: 1 DOSAGE FORM, ONCE DAILY (QD)
     Route: 064
     Dates: start: 20180701, end: 20220210
  22. TETANUS TOXOID, REDUCED DIPHTHERIA TOXOID AND ACELLULAR PERTUSSIS VACC [Concomitant]
     Active Substance: TETANUS TOXOID, REDUCED DIPHTHERIA TOXOID AND ACELLULAR PERTUSSIS VACCINE ADSORBED, TDAP
     Indication: Product used for unknown indication
     Dosage: 1 DOSAGE FORM, ONCE DAILY (QD)
     Route: 064
     Dates: start: 20211123, end: 20211123
  23. VITAMIN D3 [Concomitant]
     Active Substance: CHOLECALCIFEROL
     Indication: Product used for unknown indication
     Dosage: 5000 INTERNATIONAL UNIT, ONCE DAILY (QD)
     Route: 064
     Dates: start: 20210511, end: 20220210

REACTIONS (4)
  - Hydronephrosis [Unknown]
  - Maternal exposure during pregnancy [Unknown]
  - Maternal exposure before pregnancy [Unknown]
  - COVID-19 immunisation [Unknown]

NARRATIVE: CASE EVENT DATE: 20210523
